FAERS Safety Report 18456000 (Version 2)
Quarter: 2020Q4

REPORT INFORMATION
  Report Type: Report from Study
  Country: None (occurrence: PR)
  Receive Date: 20201103
  Receipt Date: 20201112
  Transmission Date: 20210114
  Serious: Yes (Other)
  Sender: FDA-Public Use
  Company Number: PR-ABBVIE-20K-131-3632459-00

PATIENT
  Sex: Female

DRUGS (1)
  1. HUMIRA [Suspect]
     Active Substance: ADALIMUMAB
     Indication: RHEUMATOID ARTHRITIS
     Route: 058
     Dates: start: 20200217

REACTIONS (18)
  - Vein rupture [Recovered/Resolved]
  - Peripheral coldness [Recovered/Resolved]
  - Migraine [Unknown]
  - Peripheral swelling [Unknown]
  - Feeling hot [Recovered/Resolved]
  - Pain in extremity [Recovered/Resolved]
  - Cyst [Unknown]
  - Joint injury [Unknown]
  - Pain in extremity [Recovered/Resolved]
  - Meniscus injury [Not Recovered/Not Resolved]
  - Skin induration [Recovered/Resolved]
  - Skin discolouration [Unknown]
  - Haematoma [Recovered/Resolved]
  - Peripheral swelling [Unknown]
  - Arthritis [Unknown]
  - Venous injury [Unknown]
  - Anxiety [Unknown]
  - Limb discomfort [Recovered/Resolved]

NARRATIVE: CASE EVENT DATE: 2020
